FAERS Safety Report 18645187 (Version 3)
Quarter: 2021Q1

REPORT INFORMATION
  Report Type: Spontaneous
  Country: US (occurrence: US)
  Receive Date: 20201221
  Receipt Date: 20210324
  Transmission Date: 20210419
  Serious: No
  Sender: FDA-Public Use
  Company Number: US-PFIZER INC-2020502757

PATIENT
  Age: 68 Year
  Sex: Female

DRUGS (3)
  1. IBRANCE [Suspect]
     Active Substance: PALBOCICLIB
     Dosage: 100 MG
  2. IBRANCE [Suspect]
     Active Substance: PALBOCICLIB
     Dosage: 100 MG, CYCLIC (13 DAYS ON AND THEN 14 DAYS OFF)
  3. FASLODEX [Concomitant]
     Active Substance: FULVESTRANT
     Dosage: UNK

REACTIONS (7)
  - White blood cell count abnormal [Unknown]
  - Emotional distress [Unknown]
  - Depression [Unknown]
  - Off label use [Unknown]
  - Anxiety [Unknown]
  - Red blood cell count abnormal [Unknown]
  - Neoplasm progression [Unknown]
